FAERS Safety Report 25371394 (Version 1)
Quarter: 2025Q2

REPORT INFORMATION
  Report Type: Spontaneous
  Country: US (occurrence: US)
  Receive Date: 20250529
  Receipt Date: 20250529
  Transmission Date: 20250717
  Serious: No
  Sender: CELLTRION
  Company Number: US-CELLTRION INC.-2025US012049

PATIENT

DRUGS (1)
  1. YUFLYMA [Suspect]
     Active Substance: ADALIMUMAB-AATY
     Indication: Rheumatoid arthritis
     Dosage: 40 MG EVERY OTHER WEEK / YUFLYMA AI 40 MG PEN, ONE INJECTION GIVEN SUBCUTANEOUSLY EVERY OTHER WEEK F
     Route: 058
     Dates: start: 20250312

REACTIONS (1)
  - Cough [Not Recovered/Not Resolved]
